FAERS Safety Report 7148122-9 (Version None)
Quarter: 2010Q4

REPORT INFORMATION
  Report Type: 
  Country: None (occurrence: None)
  Receive Date: 20101209
  Receipt Date: 20101203
  Transmission Date: 20110411
  Serious: No
  Sender: FDA-Public Use
  Company Number: US-PFIZER INC-2009179913

PATIENT
  Sex: Female
  Weight: 63.5 kg

DRUGS (3)
  1. RELPAX [Suspect]
     Indication: MIGRAINE
     Dosage: 20 MG, AS NEEDED
     Route: 048
  2. XANAX [Concomitant]
     Indication: ANXIETY
     Dosage: 0.25 MG, AS NEEDED
     Route: 048
  3. ACETYLSALICYLIC ACID [Concomitant]
     Indication: HEADACHE
     Dosage: 325 MG, AS NEEDED
     Route: 048

REACTIONS (1)
  - DRUG INEFFECTIVE [None]
